FAERS Safety Report 19326744 (Version 2)
Quarter: 2021Q3

REPORT INFORMATION
  Report Type: Report from Study
  Country: FR (occurrence: FR)
  Receive Date: 20210528
  Receipt Date: 20210701
  Transmission Date: 20211014
  Serious: Yes (Other)
  Sender: FDA-Public Use
  Company Number: FR-B.I. PHARMACEUTICALS,INC./RIDGEFIELD-2021-BI-105303

PATIENT
  Age: 53 Year
  Sex: Female

DRUGS (2)
  1. PERSANTIN AMPULE [Suspect]
     Active Substance: DIPYRIDAMOLE
     Indication: VASODILATATION
  2. DOTAREM [Concomitant]
     Active Substance: GADOTERATE MEGLUMINE
     Indication: PRODUCT USED FOR UNKNOWN INDICATION

REACTIONS (1)
  - Ischaemia [Unknown]
